FAERS Safety Report 4661493-8 (Version None)
Quarter: 2005Q2

REPORT INFORMATION
  Report Type: 
  Country: None (occurrence: None)
  Receive Date: 20050512
  Receipt Date: 20050512
  Transmission Date: 20051028
  Serious: No
  Sender: FDA-Public Use
  Company Number: None

PATIENT
  Sex: Male
  Weight: 96.1626 kg

DRUGS (3)
  1. ZYPREXA [Suspect]
     Indication: SCHIZOPHRENIA, PARANOID TYPE
     Dosage: 15 MG    HS    ORAL
     Route: 048
     Dates: start: 20041012, end: 20050414
  2. DOCUSATE [Concomitant]
  3. TOLFANATE POWDER [Concomitant]

REACTIONS (1)
  - NEUTROPHIL COUNT DECREASED [None]
